FAERS Safety Report 4809391-0 (Version None)
Quarter: 2005Q4

REPORT INFORMATION
  Report Type: 
  Country: None (occurrence: None)
  Receive Date: 20051021
  Receipt Date: 20051013
  Transmission Date: 20060501
  Serious: Yes (Other)
  Sender: FDA-Public Use
  Company Number: 2005142600

PATIENT
  Age: 60 Year
  Sex: Female
  Weight: 77.1115 kg

DRUGS (4)
  1. NEURONTIN [Suspect]
     Indication: FIBROMYALGIA
     Dosage: 100MG (1200 MG 1 IN 1D ) ORAL
     Route: 048
     Dates: start: 20030101, end: 20030101
  2. LYRICA [Suspect]
     Indication: FIBROMYALGIA
     Dosage: 50 MG (50 MG 1 IN 1 D) ORAL
     Route: 048
     Dates: start: 20051012
  3. VIVELLE-DOT [Concomitant]
  4. TENORMIN [Concomitant]

REACTIONS (3)
  - CONVULSION [None]
  - DIPLOPIA [None]
  - EYE DISORDER [None]
